FAERS Safety Report 14940265 (Version 1)
Quarter: 2018Q2

REPORT INFORMATION
  Report Type: Report from Study
  Country: CA (occurrence: CA)
  Receive Date: 20180525
  Receipt Date: 20180525
  Transmission Date: 20180711
  Serious: No
  Sender: FDA-Public Use
  Company Number: CA-SA-2015SA125182

PATIENT
  Age: 31 Year
  Sex: Female
  Weight: 61 kg

DRUGS (12)
  1. BENADRYL [Concomitant]
     Active Substance: DIPHENHYDRAMINE HYDROCHLORIDE
     Dosage: 50 MG,Q4H
     Route: 048
     Dates: start: 20150817
  2. ACICLOVIR [Concomitant]
     Active Substance: ACYCLOVIR
     Dosage: 200 MG,BID
     Route: 048
     Dates: start: 20150817
  3. REACTINE [CETIRIZINE HYDROCHLORIDE] [Concomitant]
     Active Substance: CETIRIZINE HYDROCHLORIDE
     Indication: PROPHYLAXIS
     Dosage: 10 MG,PRN
     Route: 048
     Dates: start: 20150816, end: 20150823
  4. ALEMTUZUMAB [Suspect]
     Active Substance: ALEMTUZUMAB
     Dosage: 12 MG,QD
     Route: 041
     Dates: start: 20140908, end: 20140912
  5. PARACETAMOL [Concomitant]
     Active Substance: ACETAMINOPHEN
     Dosage: 1000 MG,PRN
     Route: 048
     Dates: start: 20150817, end: 20150823
  6. METHYLPREDNISOLONE. [Concomitant]
     Active Substance: METHYLPREDNISOLONE
     Dosage: 1 G,QD
     Route: 042
     Dates: start: 20150817
  7. ZOPLICONE [Concomitant]
     Active Substance: ZOPICLONE
     Indication: PROPHYLAXIS
     Dosage: 7.5 MG,PRN
     Route: 048
  8. GRAVOL [Concomitant]
     Active Substance: DIMENHYDRINATE
     Dosage: 50 MG,Q4H
     Route: 048
     Dates: start: 20150817
  9. LYRICA [Concomitant]
     Active Substance: PREGABALIN
     Dosage: UNK
  10. OXYBUTYNIN CHLORIDE. [Concomitant]
     Active Substance: OXYBUTYNIN CHLORIDE
     Indication: POLLAKIURIA
     Dosage: 5 MG,QD
     Route: 048
     Dates: start: 201501
  11. ALEMTUZUMAB [Suspect]
     Active Substance: ALEMTUZUMAB
     Indication: RELAPSING-REMITTING MULTIPLE SCLEROSIS
     Dosage: 12 MG,QD
     Route: 041
     Dates: start: 20150817, end: 20150819
  12. RANITIDINE. [Concomitant]
     Active Substance: RANITIDINE
     Indication: PROPHYLAXIS
     Dosage: 150 MG,BID
     Route: 048
     Dates: start: 20150817, end: 20150823

REACTIONS (17)
  - Urine abnormality [Recovered/Resolved]
  - Headache [Recovered/Resolved]
  - Haematocrit decreased [Recovered/Resolved]
  - Haemoglobin decreased [Recovered/Resolved]
  - Eye pain [Recovered/Resolved]
  - Cough [Recovered/Resolved]
  - White blood cell count increased [Unknown]
  - Trigeminal neuralgia [Unknown]
  - White blood cells urine positive [Recovered/Resolved]
  - Lymphocyte count decreased [Recovered/Resolved]
  - Neutrophil count increased [Unknown]
  - Haemoglobin urine present [Recovered/Resolved]
  - Nasopharyngitis [Unknown]
  - Chest discomfort [Recovered/Resolved]
  - White blood cell count decreased [Recovered/Resolved]
  - Urine ketone body present [Recovered/Resolved]
  - Pain in jaw [Recovered/Resolved]

NARRATIVE: CASE EVENT DATE: 201508
